FAERS Safety Report 18209029 (Version 1)
Quarter: 2020Q3

REPORT INFORMATION
  Report Type: Spontaneous
  Country: US (occurrence: US)
  Receive Date: 20200828
  Receipt Date: 20200828
  Transmission Date: 20201103
  Serious: Yes (Death, Other)
  Sender: FDA-Public Use
  Company Number: US-GILEAD-2020-0492487

PATIENT
  Age: 51 Year
  Sex: Male
  Weight: 102 kg

DRUGS (7)
  1. REMDESIVIR. [Suspect]
     Active Substance: REMDESIVIR
     Indication: COVID-19
     Route: 065
  2. DECADRON [Concomitant]
     Active Substance: DEXAMETHASONE
     Dosage: 20 MG, QD
     Route: 042
  3. LOVENOX [Concomitant]
     Active Substance: ENOXAPARIN SODIUM
  4. XANAX [Concomitant]
     Active Substance: ALPRAZOLAM
     Indication: DYSPNOEA
  5. VITAMIN C [Concomitant]
     Active Substance: ASCORBIC ACID
     Route: 042
  6. MORPHINE [Concomitant]
     Active Substance: MORPHINE
     Indication: DYSPNOEA
  7. TOCILIZUMAB. [Concomitant]
     Active Substance: TOCILIZUMAB
     Dosage: UNK
     Dates: start: 20200807

REACTIONS (9)
  - Septic shock [Not Recovered/Not Resolved]
  - Resuscitation [Not Recovered/Not Resolved]
  - Tracheobronchitis bacterial [Not Recovered/Not Resolved]
  - Epistaxis [Not Recovered/Not Resolved]
  - Mouth haemorrhage [Not Recovered/Not Resolved]
  - Death [Fatal]
  - Respiratory distress [Not Recovered/Not Resolved]
  - General physical health deterioration [Not Recovered/Not Resolved]
  - Cardiac arrest [Not Recovered/Not Resolved]

NARRATIVE: CASE EVENT DATE: 20200818
